FAERS Safety Report 14253096 (Version 1)
Quarter: 2017Q4

REPORT INFORMATION
  Report Type: Spontaneous
  Country: US (occurrence: US)
  Receive Date: 20171206
  Receipt Date: 20171206
  Transmission Date: 20180321
  Serious: Yes (Hospitalization)
  Sender: FDA-Public Use
  Company Number: US-AUROBINDO-AUR-APL-2015-06984

PATIENT
  Sex: Male

DRUGS (10)
  1. ASPIRIN. [Concomitant]
     Active Substance: ASPIRIN
     Indication: PRODUCT USED FOR UNKNOWN INDICATION
     Dosage: 81 MG, DAILY
     Route: 048
  2. VASOTEC [Suspect]
     Active Substance: ENALAPRIL MALEATE
     Indication: HYPERTENSION
     Dosage: 2.5 MG, DAILY
     Route: 048
     Dates: start: 201405
  3. ASCORBIC ACID. [Suspect]
     Active Substance: ASCORBIC ACID
     Indication: SUPPLEMENTATION THERAPY
     Dosage: 1000 MG, DAILY
     Route: 048
     Dates: start: 199501
  4. MVI [Concomitant]
     Active Substance: VITAMINS
     Indication: SUPPLEMENTATION THERAPY
     Dosage: 1 TAB, DAILY
     Route: 048
  5. MAGNESIUM OXIDE. [Suspect]
     Active Substance: MAGNESIUM OXIDE
     Indication: SUPPLEMENTATION THERAPY
     Dosage: 400 MG, DAILY
     Dates: start: 201201
  6. FISH OIL [Concomitant]
     Active Substance: FISH OIL
     Indication: SUPPLEMENTATION THERAPY
     Dosage: 1 TABLET, DAILY
     Route: 048
     Dates: start: 199501
  7. TORASEMIDE 20MG [Suspect]
     Active Substance: TORSEMIDE
     Indication: CARDIOMYOPATHY
     Dosage: 20 MG, DAILY
     Route: 048
     Dates: start: 201411
  8. VITAMIN D3 [Suspect]
     Active Substance: CHOLECALCIFEROL
     Indication: SUPPLEMENTATION THERAPY
     Dosage: UNK, DAILY
     Route: 048
     Dates: start: 201301
  9. LEXAPRO [Suspect]
     Active Substance: ESCITALOPRAM OXALATE
     Indication: PRODUCT USED FOR UNKNOWN INDICATION
     Dosage: 5 MG, DAILY
     Dates: start: 201401
  10. GLUCOSAMINE [Concomitant]
     Active Substance: GLUCOSAMINE
     Indication: SUPPLEMENTATION THERAPY
     Dosage: 1 CAPSULE, DAILY
     Route: 048
     Dates: start: 201101

REACTIONS (1)
  - Atrial fibrillation [Unknown]
